FAERS Safety Report 5092921-4 (Version None)
Quarter: 2006Q3

REPORT INFORMATION
  Report Type: 
  Country: None (occurrence: None)
  Receive Date: 20060726
  Receipt Date: 20010720
  Transmission Date: 20061208
  Serious: Yes (Death)
  Sender: FDA-Public Use
  Company Number: 2013631

PATIENT
  Age: 29 Year
  Sex: Male

DRUGS (14)
  1. MORPHINE SULFATE [Suspect]
     Indication: DRUG USE FOR UNKNOWN INDICATION
  2. HYDROCODONE BITARTRATE (SIMILAR TO IND 59,175) (HYDROCODONE BITARTRATE [Suspect]
     Indication: DRUG USE FOR UNKNOWN INDICATION
  3. ACETAMINOPHEN [Suspect]
     Indication: DRUG USE FOR UNKNOWN INDICATION
  4. DIPHENHYDRAMINE HCL [Suspect]
     Indication: DRUG USE FOR UNKNOWN INDICATION
  5. HYDROMORPHONE HCL [Suspect]
     Indication: DRUG USE FOR UNKNOWN INDICATION
  6. PROMETHAZINE [Suspect]
     Indication: DRUG USE FOR UNKNOWN INDICATION
  7. NICOTINE [Suspect]
     Indication: DRUG USE FOR UNKNOWN INDICATION
  8. DIHYDROCODEINE (DIHYDROCODEINE) [Suspect]
     Indication: DRUG USE FOR UNKNOWN INDICATION
  9. CODEINE SUL TAB [Suspect]
     Indication: DRUG USE FOR UNKNOWN INDICATION
  10. PSEUDOEPHEDRINE (PSEUDOEPHEDRINE) [Suspect]
     Indication: DRUG USE FOR UNKNOWN INDICATION
  11. EPHEDRINE SUL CAP [Suspect]
     Indication: DRUG USE FOR UNKNOWN INDICATION
  12. BROMPHENIRAMINE [Suspect]
     Indication: DRUG USE FOR UNKNOWN INDICATION
  13. PHENOTHIAZINE (PHENOTHIAZINE) [Suspect]
     Indication: DRUG USE FOR UNKNOWN INDICATION
  14. TETRAHYDROCANNABINOL (TETRAHYDROCANNABINOL) [Suspect]
     Indication: DRUG USE FOR UNKNOWN INDICATION

REACTIONS (1)
  - ACCIDENTAL OVERDOSE [None]
